FAERS Safety Report 5175451-0 (Version None)
Quarter: 2006Q4

REPORT INFORMATION
  Report Type: 
  Country: None (occurrence: None)
  Receive Date: 20061215
  Receipt Date: 20061212
  Transmission Date: 20070319
  Serious: Yes (Life-Threatening, Hospitalization)
  Sender: FDA-Public Use
  Company Number: PHBS2006BA19215

PATIENT
  Age: 52 Year
  Sex: Female

DRUGS (2)
  1. LEPONEX [Suspect]
     Indication: ACUTE PSYCHOSIS
     Route: 048
  2. LEPONEX [Suspect]
     Dosage: 3000 MG, ONCE/SINGLE
     Route: 048
     Dates: start: 20060701, end: 20060701

REACTIONS (4)
  - DELUSION [None]
  - INTENTIONAL OVERDOSE [None]
  - MENTAL DISORDER [None]
  - SUICIDE ATTEMPT [None]
